FAERS Safety Report 7934079 (Version 3)
Quarter: 2014Q1

REPORT INFORMATION
  Report Type: Spontaneous
  Country: US (occurrence: US)
  Receive Date: 20110506
  Receipt Date: 20140204
  Transmission Date: 20141002
  Serious: Yes (Other)
  Sender: FDA-Public Use
  Company Number: US-ROCHE-743275

PATIENT
  Age: 19 Year
  Sex: Male
  Weight: 65.8 kg

DRUGS (3)
  1. ACCUTANE [Suspect]
     Indication: ACNE
     Dosage: 80 MG FOR 2 MONTHS
     Route: 065
     Dates: start: 20040507, end: 200409
  2. ACCUTANE [Suspect]
     Route: 065
     Dates: start: 20050401, end: 2005
  3. XOPENEX HFA [Concomitant]

REACTIONS (10)
  - Crohn^s disease [Unknown]
  - Gastrointestinal injury [Unknown]
  - Gastric ulcer [Unknown]
  - Colitis ulcerative [Unknown]
  - Inflammatory bowel disease [Unknown]
  - Irritable bowel syndrome [Unknown]
  - Blood cholesterol increased [Unknown]
  - Hepatic enzyme increased [Unknown]
  - Blood triglycerides increased [Unknown]
  - Dry skin [Unknown]
